FAERS Safety Report 7160896-X (Version None)
Quarter: 2010Q4

REPORT INFORMATION
  Report Type: 
  Country: None (occurrence: None)
  Receive Date: 20101214
  Receipt Date: 20091207
  Transmission Date: 20110411
  Serious: No
  Sender: FDA-Public Use
  Company Number: US-AMGEN-KDL378930

PATIENT

DRUGS (3)
  1. ENBREL [Suspect]
     Indication: ANKYLOSING SPONDYLITIS
     Dosage: 50 MG, QWK
     Route: 058
     Dates: start: 20070101
  2. SULFASALAZINE [Concomitant]
     Dosage: UNK UNK, UNK
  3. ADALIMUMAB [Concomitant]

REACTIONS (3)
  - ANKYLOSING SPONDYLITIS [None]
  - MUSCLE SPASMS [None]
  - MUSCULAR WEAKNESS [None]
